FAERS Safety Report 9282672 (Version 1)
Quarter: 2013Q2

REPORT INFORMATION
  Report Type: Spontaneous
  Country: US (occurrence: None)
  Receive Date: 20130509
  Receipt Date: 20130509
  Transmission Date: 20140414
  Serious: Yes (Other)
  Sender: FDA-Public Use
  Company Number: None

PATIENT
  Age: 52 Year
  Sex: Female

DRUGS (1)
  1. HUMIRA PEN 40MG ABBOTT [Suspect]
     Indication: RHEUMATOID ARTHRITIS
     Dosage: EVERY 7 DAYS
     Route: 058
     Dates: start: 20130205

REACTIONS (1)
  - Anogenital warts [None]
